FAERS Safety Report 21168084 (Version 1)
Quarter: 2022Q3

REPORT INFORMATION
  Report Type: Spontaneous
  Country: US (occurrence: None)
  Receive Date: 20220803
  Receipt Date: 20220803
  Transmission Date: 20221027
  Serious: No
  Sender: FDA-Public Use
  Company Number: None

PATIENT
  Age: 65 Year
  Sex: Female

DRUGS (1)
  1. CIMZIA [Suspect]
     Active Substance: CERTOLIZUMAB PEGOL
     Indication: Rheumatoid arthritis
     Dosage: INJECT 400MG (2 VIALS)  SUBCUTANEOUSLY EVERY 4 WEEKS AS DIRECTED. IN THE ABDOMEN OR THIGH
     Route: 058
     Dates: start: 202201

REACTIONS (1)
  - COVID-19 [None]
